FAERS Safety Report 6373615-1 (Version None)
Quarter: 2009Q3

REPORT INFORMATION
  Report Type: 
  Country: None (occurrence: None)
  Receive Date: 20090924
  Receipt Date: 20090914
  Transmission Date: 20100115
  Serious: Yes (Other)
  Sender: FDA-Public Use
  Company Number: US-PFIZER INC-2009270483

PATIENT
  Sex: Female
  Weight: 99.773 kg

DRUGS (11)
  1. NICOTROL [Suspect]
     Indication: SMOKING CESSATION THERAPY
     Dosage: UNK
     Route: 055
     Dates: start: 20090801
  2. PRILOSEC [Concomitant]
     Indication: GASTROOESOPHAGEAL REFLUX DISEASE
     Dosage: FREQUENCY: 2X/DAY,
     Route: 048
     Dates: start: 19940101
  3. SYNTHROID [Concomitant]
     Indication: HYPOTHYROIDISM
     Dosage: FREQUENCY: ONCE,
     Route: 048
     Dates: start: 19890101
  4. CELEXA [Concomitant]
     Indication: DEPRESSION
     Dosage: FREQUENCY: ONCE,
     Route: 048
  5. LAMICTAL [Concomitant]
     Indication: BIPOLAR DISORDER
     Dosage: FREQUENCY: ONCE,
     Route: 048
  6. KLONOPIN [Concomitant]
     Indication: ANXIETY
     Dosage: FREQUENCY: 3X/DAY,
     Route: 048
     Dates: start: 19990101
  7. KLONOPIN [Concomitant]
     Indication: PANIC DISORDER
  8. ZYPREXA [Concomitant]
     Indication: BIPOLAR DISORDER
     Dosage: FREQUENCY: ONCE,
     Route: 048
     Dates: start: 20090601
  9. TRAZODONE HYDROCHLORIDE [Concomitant]
     Indication: SLEEP DISORDER
     Dosage: FREQUENCY: ONCE,
     Route: 048
     Dates: start: 20050101
  10. TEMAZEPAM [Concomitant]
     Indication: SLEEP DISORDER
     Dosage: FREQUENCY: ONCE,
     Route: 048
     Dates: start: 20060101
  11. CARAFATE [Concomitant]
     Indication: ABDOMINAL DISCOMFORT
     Dosage: UNK
     Route: 048

REACTIONS (1)
  - ALLERGIC PHARYNGITIS [None]
